FAERS Safety Report 12961767 (Version 1)
Quarter: 2016Q4

REPORT INFORMATION
  Report Type: Report from Study
  Country: US (occurrence: US)
  Receive Date: 20161121
  Receipt Date: 20161121
  Transmission Date: 20170207
  Serious: Yes (Other)
  Sender: FDA-Public Use
  Company Number: US-MALLINCKRODT-T201605829

PATIENT
  Age: 55 Year
  Sex: Female

DRUGS (1)
  1. REPOSITORY CORTICOTROPIN INJECTION [Suspect]
     Active Substance: CORTICOTROPIN
     Indication: OPTIC NEURITIS
     Dosage: 80 UNITS ONCE DAILY FOR 5 DAYS
     Route: 065
     Dates: start: 20161025, end: 20161104

REACTIONS (4)
  - Pruritus [Unknown]
  - Swelling face [Unknown]
  - Paraesthesia oral [Unknown]
  - Rash generalised [Unknown]

NARRATIVE: CASE EVENT DATE: 20161103
